FAERS Safety Report 13429135 (Version 1)
Quarter: 2017Q2

REPORT INFORMATION
  Report Type: Spontaneous
  Country: DK (occurrence: DK)
  Receive Date: 20170411
  Receipt Date: 20170411
  Transmission Date: 20170830
  Serious: Yes (Hospitalization)
  Sender: FDA-Public Use
  Company Number: PHHY2017DK051117

PATIENT
  Age: 55 Year
  Sex: Female

DRUGS (3)
  1. IMADRAX [Concomitant]
     Active Substance: AMOXICILLIN
     Indication: SINUSITIS
     Dosage: UNK
     Route: 065
     Dates: start: 20170124, end: 20170128
  2. FLIXONASE [Suspect]
     Active Substance: FLUTICASONE PROPIONATE
     Indication: SINUSITIS
     Dosage: 2 DF, BID
     Route: 045
     Dates: start: 20170124, end: 20170128
  3. IMADRAX [Suspect]
     Active Substance: AMOXICILLIN
     Indication: INFECTION
     Dosage: 750 MG, TID
     Route: 048
     Dates: start: 20170124

REACTIONS (4)
  - Lip pain [Recovered/Resolved]
  - Mouth swelling [Recovered/Resolved]
  - Swelling face [Recovered/Resolved]
  - Swollen tongue [Recovered/Resolved]

NARRATIVE: CASE EVENT DATE: 20170127
